FAERS Safety Report 7097841-1 (Version None)
Quarter: 2010Q4

REPORT INFORMATION
  Report Type: 
  Country: None (occurrence: None)
  Receive Date: 20101112
  Receipt Date: 20100928
  Transmission Date: 20110411
  Serious: Yes (Hospitalization)
  Sender: FDA-Public Use
  Company Number: US-BAYER-201028175NA

PATIENT
  Age: 39 Year
  Sex: Female
  Weight: 86 kg

DRUGS (12)
  1. YAZ [Suspect]
     Indication: CONTRACEPTION
     Route: 048
     Dates: start: 20070201, end: 20071001
  2. YASMIN [Suspect]
     Indication: CONTRACEPTION
     Dates: start: 20070201, end: 20071001
  3. DYAZIDE [Concomitant]
     Indication: HYPERTENSION
     Dates: start: 20090901
  4. ACETAMINOPHEN [Concomitant]
  5. IBUPROFEN [Concomitant]
  6. ALEVE (CAPLET) [Concomitant]
  7. ADVIL [Concomitant]
  8. TRILIPIX [Concomitant]
     Indication: BLOOD CHOLESTEROL ABNORMAL
     Dates: start: 20090901
  9. PROZAC [Concomitant]
     Indication: DEPRESSION
     Dates: start: 20090901
  10. KLONOPIN [Concomitant]
     Indication: ANXIETY
     Dates: start: 20090901
  11. METFORMIN HCL [Concomitant]
     Indication: POLYCYSTIC OVARIES
     Dates: start: 20090901
  12. ADIPEX [Concomitant]
     Indication: WEIGHT DECREASED

REACTIONS (6)
  - ABDOMINAL PAIN UPPER [None]
  - CHOLECYSTITIS ACUTE [None]
  - CHOLELITHIASIS [None]
  - LEUKOCYTOSIS [None]
  - NAUSEA [None]
  - VOMITING [None]
